FAERS Safety Report 8197535-5 (Version None)
Quarter: 2012Q1

REPORT INFORMATION
  Report Type: 
  Country: None (occurrence: None)
  Receive Date: 20120309
  Receipt Date: 20120224
  Transmission Date: 20120608
  Serious: Yes (Death)
  Sender: FDA-Public Use
  Company Number: JP-ROCHE-1044132

PATIENT
  Sex: Male
  Weight: 125 kg

DRUGS (2)
  1. TAMIFLU [Suspect]
     Indication: INFLUENZA
     Route: 048
     Dates: start: 20120221, end: 20120221
  2. ACETAMINOPHEN [Concomitant]
     Indication: PYREXIA
     Dosage: DOSAGE IS UNCERTAIN.
     Route: 048
     Dates: start: 20120221

REACTIONS (1)
  - SUDDEN DEATH [None]
